FAERS Safety Report 8825693 (Version 2)
Quarter: 2012Q4

REPORT INFORMATION
  Report Type: 
  Country: IT (occurrence: IT)
  Receive Date: 20121004
  Receipt Date: 20121009
  Transmission Date: 20130627
  Serious: Yes (Hospitalization, Other)
  Sender: FDA-Public Use
  Company Number: IT-PFIZER INC-2012237024

PATIENT
  Age: 84 Year
  Sex: Female

DRUGS (6)
  1. RAMIPRIL [Suspect]
     Indication: HYPERTENSION
     Dosage: 10 mg daily
     Route: 048
     Dates: start: 20060101, end: 20120919
  2. REPAGLINIDE [Concomitant]
     Dosage: UNK
  3. METFORMIN [Concomitant]
     Dosage: UNK
  4. ALLOPURINOL [Concomitant]
     Dosage: UNK
  5. TIKLID [Concomitant]
     Dosage: UNK
  6. LACIREX [Concomitant]
     Dosage: UNK

REACTIONS (1)
  - Renal failure acute [Recovering/Resolving]
